FAERS Safety Report 17516766 (Version 1)
Quarter: 2020Q1

REPORT INFORMATION
  Report Type: Spontaneous
  Country: JP (occurrence: JP)
  Receive Date: 20200309
  Receipt Date: 20200309
  Transmission Date: 20200409
  Serious: Yes (Death)
  Sender: FDA-Public Use
  Company Number: JP-PFIZER INC-2020099676

PATIENT
  Age: 39 Year
  Sex: Male

DRUGS (9)
  1. ETOPOSIDE. [Concomitant]
     Active Substance: ETOPOSIDE
     Indication: NATURAL KILLER-CELL LYMPHOBLASTIC LYMPHOMA
     Dosage: UNK, CYCLIC
     Dates: start: 200010
  2. CISPLATIN. [Concomitant]
     Active Substance: CISPLATIN
     Indication: NATURAL KILLER-CELL LYMPHOBLASTIC LYMPHOMA
     Dosage: UNK, CYCLIC
     Dates: start: 200010
  3. VINCRISTINE [Concomitant]
     Active Substance: VINCRISTINE
     Indication: NATURAL KILLER-CELL LYMPHOBLASTIC LYMPHOMA
     Dosage: UNK, CYCLIC
     Dates: start: 200010
  4. METHYLPREDNISOLONE. [Concomitant]
     Active Substance: METHYLPREDNISOLONE
     Indication: NATURAL KILLER-CELL LYMPHOBLASTIC LYMPHOMA
     Dosage: UNK, CYCLIC
     Dates: start: 200010
  5. CYTARABINE. [Concomitant]
     Active Substance: CYTARABINE
     Indication: NATURAL KILLER-CELL LYMPHOBLASTIC LYMPHOMA
     Dosage: UNK, CYCLIC
     Dates: start: 200010
  6. PREDNISOLONE. [Concomitant]
     Active Substance: PREDNISOLONE
     Indication: NATURAL KILLER-CELL LYMPHOBLASTIC LYMPHOMA
     Dosage: UNK, CYCLIC
     Dates: start: 200010
  7. METHOTREXATE SODIUM. [Suspect]
     Active Substance: METHOTREXATE SODIUM
     Indication: NATURAL KILLER-CELL LYMPHOBLASTIC LYMPHOMA
     Dosage: UNK, CYCLIC, (INJECTION INTO HIS SPINAL FLUID)
     Route: 037
  8. CYCLOPHOSPHAMIDE. [Concomitant]
     Active Substance: CYCLOPHOSPHAMIDE
     Indication: NATURAL KILLER-CELL LYMPHOBLASTIC LYMPHOMA
     Dosage: UNK, CYCLIC
     Dates: start: 200010
  9. DOXORUBICIN [Concomitant]
     Active Substance: DOXORUBICIN
     Indication: NATURAL KILLER-CELL LYMPHOBLASTIC LYMPHOMA
     Dosage: UNK, CYCLIC
     Dates: start: 200010

REACTIONS (3)
  - Product use in unapproved indication [Unknown]
  - Neoplasm progression [Fatal]
  - Off label use [Unknown]
